FAERS Safety Report 13006049 (Version 1)
Quarter: 2016Q4

REPORT INFORMATION
  Report Type: Spontaneous
  Country: US (occurrence: US)
  Receive Date: 20161206
  Receipt Date: 20161206
  Transmission Date: 20170207
  Serious: Yes (Hospitalization, Disabling)
  Sender: FDA-Public Use
  Company Number: None

PATIENT
  Age: 11 Year
  Sex: Female
  Weight: 49.5 kg

DRUGS (11)
  1. VITAMIN B-6 [Concomitant]
     Active Substance: PYRIDOXINE
  2. ZYRTEC [Concomitant]
     Active Substance: CETIRIZINE HYDROCHLORIDE
  3. IBUPROFEN. [Concomitant]
     Active Substance: IBUPROFEN
  4. LEXAPRO [Concomitant]
     Active Substance: ESCITALOPRAM OXALATE
  5. TURMERIC [Concomitant]
     Active Substance: TURMERIC
  6. TRIPLE MAGNESIUM COMPLEX [Concomitant]
  7. VITAMIN D3 [Concomitant]
     Active Substance: CHOLECALCIFEROL
  8. VITAMIN C [Concomitant]
     Active Substance: ASCORBIC ACID
  9. MELATONIN [Concomitant]
     Active Substance: MELATONIN
  10. GABAPENTIN. [Suspect]
     Active Substance: GABAPENTIN
     Indication: COMPLEX REGIONAL PAIN SYNDROME
     Dosage: ?          QUANTITY:2 TABLET(S);?
     Route: 048
     Dates: start: 20161107, end: 20161117
  11. FISH OIL [Concomitant]
     Active Substance: FISH OIL

REACTIONS (7)
  - Amnesia [None]
  - Seizure [None]
  - Hallucination, visual [None]
  - Dyspnoea [None]
  - Hallucination [None]
  - Therapy change [None]
  - Anxiety [None]

NARRATIVE: CASE EVENT DATE: 20161113
